FAERS Safety Report 13259260 (Version 1)
Quarter: 2017Q1

REPORT INFORMATION
  Report Type: Spontaneous
  Country: US (occurrence: US)
  Receive Date: 20170222
  Receipt Date: 20170222
  Transmission Date: 20170428
  Serious: No
  Sender: FDA-Public Use
  Company Number: US-PFIZER INC-2017066758

PATIENT
  Age: 42 Year
  Sex: Female
  Weight: 86.17 kg

DRUGS (2)
  1. DEPO-PROVERA [Suspect]
     Active Substance: MEDROXYPROGESTERONE ACETATE
     Indication: CONTRACEPTION
     Dosage: UNK
     Route: 030
     Dates: start: 20160824
  2. DEPO-PROVERA [Suspect]
     Active Substance: MEDROXYPROGESTERONE ACETATE
     Dosage: UNK
     Route: 058
     Dates: start: 20170207

REACTIONS (2)
  - Metrorrhagia [Not Recovered/Not Resolved]
  - Incorrect route of drug administration [Not Recovered/Not Resolved]

NARRATIVE: CASE EVENT DATE: 20170203
